FAERS Safety Report 22156819 (Version 1)
Quarter: 2023Q1

REPORT INFORMATION
  Report Type: Spontaneous
  Country: CA (occurrence: CA)
  Receive Date: 20230330
  Receipt Date: 20230330
  Transmission Date: 20230418
  Serious: Yes (Other)
  Sender: FDA-Public Use
  Company Number: CA-PFIZER INC-2021536239

PATIENT
  Age: 68 Year
  Sex: Female
  Weight: 82 kg

DRUGS (5)
  1. RUXIENCE [Suspect]
     Active Substance: RITUXIMAB-PVVR
     Indication: Rheumatoid arthritis
     Dosage: 1000 MG, AT DAY 1 AND DAY 15
     Route: 042
     Dates: start: 20210721, end: 20210804
  2. RUXIENCE [Suspect]
     Active Substance: RITUXIMAB-PVVR
     Dosage: 1000 MG, 1 DOSE
     Route: 042
     Dates: start: 20220216, end: 20220216
  3. RUXIENCE [Suspect]
     Active Substance: RITUXIMAB-PVVR
     Dosage: 1000 MG, 1 DOSE
     Route: 042
     Dates: start: 20220923
  4. RUXIENCE [Suspect]
     Active Substance: RITUXIMAB-PVVR
     Dosage: 1000 MG, 1 DOSE
     Route: 042
     Dates: start: 20220923, end: 20220923
  5. PREDNISONE [Concomitant]
     Active Substance: PREDNISONE
     Dosage: 250 UG, 1X/DAY
     Route: 065

REACTIONS (2)
  - Dental implantation [Recovered/Resolved]
  - Off label use [Unknown]
